FAERS Safety Report 17916504 (Version 1)
Quarter: 2020Q2

REPORT INFORMATION
  Report Type: Spontaneous
  Country: JP (occurrence: JP)
  Receive Date: 20200619
  Receipt Date: 20200619
  Transmission Date: 20200714
  Serious: Yes (Hospitalization, Other)
  Sender: FDA-Public Use
  Company Number: JP-STRIDES ARCOLAB LIMITED-2020SP007126

PATIENT
  Age: 6 Decade
  Sex: Female

DRUGS (9)
  1. DONEPEZIL. [Suspect]
     Active Substance: DONEPEZIL
     Dosage: INCREASED TO 10 MILLIGRAM PER DAY
     Route: 065
  2. GALANTAMINE. [Suspect]
     Active Substance: GALANTAMINE
     Indication: COGNITIVE DISORDER
  3. MEMANTINE. [Suspect]
     Active Substance: MEMANTINE
     Indication: PSYCHIATRIC SYMPTOM
  4. MEMANTINE. [Suspect]
     Active Substance: MEMANTINE
     Indication: COGNITIVE DISORDER
  5. DONEPEZIL. [Suspect]
     Active Substance: DONEPEZIL
     Indication: DEMENTIA ALZHEIMER^S TYPE
     Dosage: 3 MILLIGRAM PER DAY
     Route: 065
  6. MEMANTINE. [Suspect]
     Active Substance: MEMANTINE
     Indication: DEMENTIA ALZHEIMER^S TYPE
     Dosage: UNK
     Route: 065
  7. GALANTAMINE. [Suspect]
     Active Substance: GALANTAMINE
     Indication: DEMENTIA ALZHEIMER^S TYPE
     Dosage: UNK
     Route: 065
  8. GALANTAMINE. [Suspect]
     Active Substance: GALANTAMINE
     Indication: PSYCHIATRIC SYMPTOM
     Dosage: 4 MILLIGRAM, BID
     Route: 065
  9. SUVOREXANT. [Concomitant]
     Active Substance: SUVOREXANT
     Indication: PRODUCT USED FOR UNKNOWN INDICATION
     Dosage: UNK
     Route: 065

REACTIONS (5)
  - Visuospatial deficit [Recovered/Resolved]
  - Posture abnormal [Recovered/Resolved]
  - Drug ineffective [Unknown]
  - Pleurothotonus [Recovered/Resolved]
  - Agitation [Recovered/Resolved]
